FAERS Safety Report 12510345 (Version 1)
Quarter: 2016Q2

REPORT INFORMATION
  Report Type: Spontaneous
  Country: US (occurrence: US)
  Receive Date: 20160629
  Receipt Date: 20160629
  Transmission Date: 20160815
  Serious: Yes (Hospitalization)
  Sender: FDA-Public Use
  Company Number: US-MEDA-2016060091

PATIENT
  Age: 26 Year
  Sex: Female
  Weight: 69 kg

DRUGS (22)
  1. SODIUM CHLORIDE. [Concomitant]
     Active Substance: SODIUM CHLORIDE
  2. LAMOTRIGINE. [Suspect]
     Active Substance: LAMOTRIGINE
     Indication: SEIZURE
  3. SABRIL [Suspect]
     Active Substance: VIGABATRIN
     Indication: GENERALISED TONIC-CLONIC SEIZURE
  4. VIMPAT [Suspect]
     Active Substance: LACOSAMIDE
     Indication: SEIZURE
  5. SODIUM CHLORIDE. [Concomitant]
     Active Substance: SODIUM CHLORIDE
  6. LOVENOX [Concomitant]
     Active Substance: ENOXAPARIN SODIUM
  7. FELBATOL [Suspect]
     Active Substance: FELBAMATE
     Indication: SEIZURE
  8. KEPPRA [Suspect]
     Active Substance: LEVETIRACETAM
     Indication: SEIZURE
  9. KEPPRA [Suspect]
     Active Substance: LEVETIRACETAM
     Indication: SEIZURE
  10. DEXTROSE WITH SODIUM CHLORIDE [Concomitant]
     Active Substance: DEXTROSE\SODIUM CHLORIDE
     Dosage: DEXTROSE 5 PERCENT WITH SODIUM CHLORIDE 0.45 PERCENT
     Route: 042
  11. FELBATOL [Suspect]
     Active Substance: FELBAMATE
     Indication: SEIZURE
  12. FELBATOL [Suspect]
     Active Substance: FELBAMATE
     Indication: SEIZURE
  13. FELBATOL [Suspect]
     Active Substance: FELBAMATE
     Indication: SEIZURE
  14. SABRIL [Suspect]
     Active Substance: VIGABATRIN
     Indication: GENERALISED TONIC-CLONIC SEIZURE
     Dates: start: 201509
  15. CLONAZEPAM. [Suspect]
     Active Substance: CLONAZEPAM
     Indication: SEIZURE
  16. SODIUM CHLORIDE. [Concomitant]
     Active Substance: SODIUM CHLORIDE
  17. SODIUM CHLORIDE. [Concomitant]
     Active Substance: SODIUM CHLORIDE
  18. MAGNESIUM SULFATE. [Concomitant]
     Active Substance: MAGNESIUM SULFATE
     Route: 042
  19. DIASTAT ACUDIAL [Concomitant]
     Active Substance: DIAZEPAM
  20. MAGNESIUM SULFATE. [Concomitant]
     Active Substance: MAGNESIUM SULFATE
     Route: 042
  21. AMITIZA [Concomitant]
     Active Substance: LUBIPROSTONE
  22. SODIUM CHLORIDE. [Concomitant]
     Active Substance: SODIUM CHLORIDE
     Dosage: 20 MEQ/100 ML
     Route: 042

REACTIONS (7)
  - Fatigue [Unknown]
  - Pyrexia [Unknown]
  - Sedation [Unknown]
  - Overdose [Unknown]
  - Tremor [Unknown]
  - Seizure [Recovering/Resolving]
  - Vomiting [Unknown]

NARRATIVE: CASE EVENT DATE: 20160509
